FAERS Safety Report 10728502 (Version 2)
Quarter: 2015Q1

REPORT INFORMATION
  Report Type: Spontaneous
  Country: BR (occurrence: BR)
  Receive Date: 20150122
  Receipt Date: 20150304
  Transmission Date: 20150721
  Serious: Yes (Other)
  Sender: FDA-Public Use
  Company Number: BR-TAKEDA-THQ2005A00968

PATIENT
  Sex: Male
  Weight: 85 kg

DRUGS (15)
  1. ACTOS [Suspect]
     Active Substance: PIOGLITAZONE HYDROCHLORIDE
     Dosage: 30 MG, BID
     Route: 048
     Dates: start: 2009
  2. AMLODIPINE [Concomitant]
     Active Substance: AMLODIPINE BESYLATE
     Indication: PRODUCT USED FOR UNKNOWN INDICATION
     Dosage: UNK
  3. CARVEDILOL. [Concomitant]
     Active Substance: CARVEDILOL
     Indication: ILL-DEFINED DISORDER
     Dosage: 5 MG, UNK
     Route: 048
  4. ALLOPURINOL. [Concomitant]
     Active Substance: ALLOPURINOL
     Indication: GOUT
     Dosage: 300 MG, QD
     Route: 048
  5. METFORMIN [Suspect]
     Active Substance: METFORMIN HYDROCHLORIDE
     Indication: PRODUCT USED FOR UNKNOWN INDICATION
     Dosage: UNK
     Route: 065
  6. BURINAX [Concomitant]
     Active Substance: BUMETANIDE
     Indication: DIURETIC THERAPY
     Dosage: 1 MG, QD
     Route: 048
  7. FUROSEMIDE. [Concomitant]
     Active Substance: FUROSEMIDE
     Indication: DIURETIC THERAPY
     Dosage: 80 MG, UNK
     Route: 048
  8. INSULIN [Concomitant]
     Active Substance: INSULIN NOS
     Indication: DIABETES MELLITUS
     Dosage: 20U-25U AT NIGHT
     Route: 058
  9. GLIMEPIRIDE. [Concomitant]
     Active Substance: GLIMEPIRIDE
     Indication: DIABETES MELLITUS
     Dosage: UNK
     Route: 048
  10. AAS INFANTIL [Concomitant]
     Active Substance: ASPIRIN
     Indication: BLOOD DISORDER
     Dosage: 1 TABLET (1 TABLET, QD)
     Route: 048
  11. AMIODARONE [Concomitant]
     Active Substance: AMIODARONE
     Indication: ARRHYTHMIA
     Dosage: UNK
     Route: 048
  12. ACTOS [Suspect]
     Active Substance: PIOGLITAZONE HYDROCHLORIDE
     Indication: DIABETES MELLITUS
     Dosage: 30 MG, BID
     Route: 048
     Dates: start: 2000, end: 2000
  13. ENALAPRIL [Concomitant]
     Active Substance: ENALAPRIL
     Indication: HYPERTENSION
     Dosage: 10 MG, QD
     Route: 048
  14. SINVASTATINA [Concomitant]
     Active Substance: SIMVASTATIN
     Indication: ATHEROSCLEROSIS PROPHYLAXIS
     Dosage: 1 TABLET; FORM STRENGTH: 10-20MG
     Route: 048
  15. ROSIGLITAZONE [Concomitant]
     Active Substance: ROSIGLITAZONE
     Indication: DIABETES MELLITUS
     Dosage: UNK
     Route: 048

REACTIONS (13)
  - Interstitial lung disease [Recovered/Resolved]
  - Abdominal pain [Recovered/Resolved]
  - Renal failure [Not Recovered/Not Resolved]
  - Tachyarrhythmia [Recovered/Resolved]
  - Hypoglycaemia [Recovering/Resolving]
  - Oedema peripheral [Recovered/Resolved]
  - Fluid retention [Recovered/Resolved]
  - Oedema peripheral [Recovered/Resolved]
  - Cataract diabetic [Unknown]
  - Oedema peripheral [Recovered/Resolved]
  - Diarrhoea [Recovered/Resolved]
  - Blood uric acid increased [Unknown]
  - Anaemia [Unknown]

NARRATIVE: CASE EVENT DATE: 2000
